FAERS Safety Report 5842544-1 (Version None)
Quarter: 2008Q3

REPORT INFORMATION
  Report Type: 
  Country: None (occurrence: None)
  Receive Date: 20080812
  Receipt Date: 20080806
  Transmission Date: 20090109
  Serious: Yes (Other)
  Sender: FDA-Public Use
  Company Number: MX-GILEAD-2008-0017160

PATIENT
  Sex: Male

DRUGS (2)
  1. EMTRICITABINE/TENOFOVIR DISOPROXIL FUMARATE [Suspect]
     Dates: start: 20060620, end: 20080506
  2. LOPINAVIR/RITONAVIR [Concomitant]
     Dosage: 400/100

REACTIONS (2)
  - HAEMORRHAGIC ANAEMIA [None]
  - RENAL FAILURE [None]
